FAERS Safety Report 7620983-6 (Version None)
Quarter: 2011Q3

REPORT INFORMATION
  Report Type: 
  Country: None (occurrence: None)
  Receive Date: 20110719
  Receipt Date: 20110322
  Transmission Date: 20111222
  Serious: No
  Sender: FDA-Public Use
  Company Number: US-KINGPHARMUSA00001-K201100328

PATIENT
  Sex: Female
  Weight: 47.619 kg

DRUGS (3)
  1. LORAZEPAM [Concomitant]
     Dosage: 0.5 MG, QHS
  2. SIMVASTATIN [Concomitant]
     Indication: BLOOD CHOLESTEROL INCREASED
     Dosage: 20 MG, QHS
  3. LEVOXYL [Suspect]
     Indication: HYPOTHYROIDISM
     Dosage: 50 MCG, QD
     Route: 048
     Dates: start: 20110317, end: 20110318

REACTIONS (1)
  - ABDOMINAL PAIN UPPER [None]
